FAERS Safety Report 9711693 (Version 1)
Quarter: 2013Q4

REPORT INFORMATION
  Report Type: Spontaneous
  Country: JP (occurrence: JP)
  Receive Date: 20131126
  Receipt Date: 20131126
  Transmission Date: 20140711
  Serious: Yes (Other)
  Sender: FDA-Public Use
  Company Number: JP-PFIZER INC-2013331912

PATIENT
  Age: 12 Year
  Sex: Male

DRUGS (3)
  1. METHYLPREDNISOLONE [Suspect]
  2. MINOMYCIN [Concomitant]
     Indication: PNEUMONIA MYCOPLASMAL
  3. MINOMYCIN [Concomitant]
     Indication: PLEURISY

REACTIONS (1)
  - Tuberculous pleurisy [Recovered/Resolved]
